FAERS Safety Report 23848052 (Version 1)
Quarter: 2024Q2

REPORT INFORMATION
  Report Type: Spontaneous
  Country: US (occurrence: None)
  Receive Date: 20240510
  Receipt Date: 20240510
  Transmission Date: 20240715
  Serious: No
  Sender: FDA-Public Use
  Company Number: None

PATIENT
  Age: 72 Year
  Sex: Female
  Weight: 57.61 kg

DRUGS (2)
  1. LENVIMA [Suspect]
     Active Substance: LENVATINIB
     Indication: Thyroid cancer
     Dosage: 12 MG DFAILY ORAL?
     Route: 048
     Dates: start: 20240426
  2. FUROSEMIDE [Concomitant]
     Active Substance: FUROSEMIDE

REACTIONS (5)
  - Pollakiuria [None]
  - Middle insomnia [None]
  - Insomnia [None]
  - Body fat disorder [None]
  - Skin mass [None]

NARRATIVE: CASE EVENT DATE: 20240508
